FAERS Safety Report 11139677 (Version 1)
Quarter: 2015Q2

REPORT INFORMATION
  Report Type: Spontaneous
  Country: FR (occurrence: FR)
  Receive Date: 20150527
  Receipt Date: 20150527
  Transmission Date: 20150821
  Serious: Yes (Hospitalization)
  Sender: FDA-Public Use
  Company Number: FR-PFIZER INC-2015174285

PATIENT
  Age: 53 Year
  Sex: Male

DRUGS (3)
  1. CIFLOX [Suspect]
     Active Substance: CIPROFLOXACIN
     Indication: ERYSIPELAS
     Dosage: 500 MG, 2X/DAY
     Route: 048
     Dates: start: 20140830, end: 20140913
  2. TAVANIC [Concomitant]
     Active Substance: LEVOFLOXACIN
     Indication: ERYSIPELAS
     Dosage: UNK
     Dates: start: 20140826, end: 20140830
  3. TAZOCILLINE [Suspect]
     Active Substance: PIPERACILLIN SODIUM\TAZOBACTAM SODIUM
     Indication: ERYSIPELAS
     Dosage: 4 G, 3X/DAY
     Route: 041
     Dates: start: 20140830, end: 20140913

REACTIONS (1)
  - Hypersensitivity vasculitis [Recovered/Resolved]

NARRATIVE: CASE EVENT DATE: 20140912
